FAERS Safety Report 14237698 (Version 1)
Quarter: 2017Q4

REPORT INFORMATION
  Report Type: Spontaneous
  Country: FR (occurrence: FR)
  Receive Date: 20171129
  Receipt Date: 20171129
  Transmission Date: 20180321
  Serious: Yes (Other)
  Sender: FDA-Public Use
  Company Number: FR-MERCK KGAA-2036331

PATIENT
  Age: 79 Year
  Sex: Female

DRUGS (12)
  1. NOVOTHYROX [Suspect]
     Active Substance: LEVOTHYROXINE SODIUM
     Indication: PARATHYROIDECTOMY
     Dates: start: 201703
  2. BISOPROLOL [Concomitant]
     Active Substance: BISOPROLOL
  3. CARBOSYMAG [Concomitant]
  4. OSSOPAN [Concomitant]
  5. KARDEGIC [Concomitant]
     Active Substance: ASPIRIN DL-LYSINE
  6. PANTOPRAZOLE [Concomitant]
     Active Substance: PANTOPRAZOLE
  7. NOVONORM [Concomitant]
     Active Substance: REPAGLINIDE
  8. TIORFAN [Concomitant]
     Active Substance: RACECADOTRIL
  9. FENOFIBRATE. [Concomitant]
     Active Substance: FENOFIBRATE
  10. GLUCOPHAGE [Concomitant]
     Active Substance: METFORMIN HYDROCHLORIDE
  11. DEDROGYL [Concomitant]
     Active Substance: CALCIFEDIOL
  12. LYCOPODIUM CLAVATUM [Concomitant]
     Active Substance: HOMEOPATHICS

REACTIONS (13)
  - Muscle spasms [Not Recovered/Not Resolved]
  - Feeling abnormal [Not Recovered/Not Resolved]
  - Hot flush [Not Recovered/Not Resolved]
  - Sneezing [Not Recovered/Not Resolved]
  - Fatigue [Not Recovered/Not Resolved]
  - Pruritus [Not Recovered/Not Resolved]
  - Diabetes mellitus inadequate control [Not Recovered/Not Resolved]
  - Dizziness [Not Recovered/Not Resolved]
  - Diarrhoea [Not Recovered/Not Resolved]
  - Pain [Not Recovered/Not Resolved]
  - Cough [Not Recovered/Not Resolved]
  - Throat irritation [Not Recovered/Not Resolved]
  - Nausea [Not Recovered/Not Resolved]

NARRATIVE: CASE EVENT DATE: 2017
